FAERS Safety Report 21202192 (Version 1)
Quarter: 2022Q3

REPORT INFORMATION
  Report Type: Spontaneous
  Country: BR (occurrence: BR)
  Receive Date: 20220811
  Receipt Date: 20220811
  Transmission Date: 20221027
  Serious: Yes (Other)
  Sender: FDA-Public Use
  Company Number: BR-ABBOTT-2022A-1351783

PATIENT
  Sex: Female
  Weight: 54 kg

DRUGS (2)
  1. DEPAKOTE [Suspect]
     Active Substance: DIVALPROEX SODIUM
     Indication: Mitochondrial myopathy
     Dosage: 2 TIMES A DAY, IN THE MORNING AND IN THE EVENING
     Route: 048
     Dates: start: 201811
  2. DEPAKOTE [Suspect]
     Active Substance: DIVALPROEX SODIUM
     Indication: Myoclonus

REACTIONS (4)
  - Cholecystectomy [Unknown]
  - Product storage error [Unknown]
  - Product use in unapproved indication [Unknown]
  - Product complaint [Unknown]
